FAERS Safety Report 16243368 (Version 1)
Quarter: 2019Q2

REPORT INFORMATION
  Report Type: Spontaneous
  Country: US (occurrence: US)
  Receive Date: 20190322
  Receipt Date: 20190322
  Transmission Date: 20190711
  Serious: No
  Sender: FDA-Public Use
  Company Number: None

PATIENT
  Age: 65 Year
  Sex: Male

DRUGS (1)
  1. ABACAVIR SULFATE-LAMIVUDINE TAB [Suspect]
     Active Substance: ABACAVIR SULFATE\LAMIVUDINE
     Dates: start: 20180820

REACTIONS (1)
  - Haemangioma of bone [None]

NARRATIVE: CASE EVENT DATE: 20190206
